FAERS Safety Report 14346370 (Version 1)
Quarter: 2018Q1

REPORT INFORMATION
  Report Type: Spontaneous
  Country: CN (occurrence: CN)
  Receive Date: 20180103
  Receipt Date: 20180103
  Transmission Date: 20180509
  Serious: Yes (Hospitalization)
  Sender: FDA-Public Use
  Company Number: CN-PFIZER INC-2018000649

PATIENT
  Age: 58 Year
  Sex: Female
  Weight: 87 kg

DRUGS (4)
  1. CEFMENOXIME HYDROCHLORIDE [Suspect]
     Active Substance: CEFMENOXIME HYDROCHLORIDE
     Indication: PNEUMONITIS
     Dosage: 2 G, 2X/DAY
     Route: 041
     Dates: start: 20170906, end: 20171005
  2. LAI LI XIN [Suspect]
     Active Substance: LEVOFLOXACIN
     Indication: PNEUMONITIS
     Dosage: 0.4 G, 1X/DAY
     Route: 041
     Dates: start: 20170915, end: 20171012
  3. DIFLUCAN [Suspect]
     Active Substance: FLUCONAZOLE
     Indication: PNEUMONITIS
     Dosage: 200 MG, 1X/DAY
     Route: 048
     Dates: start: 20170906, end: 20171005
  4. SODIUM CHLORIDE. [Concomitant]
     Active Substance: SODIUM CHLORIDE
     Indication: VEHICLE SOLUTION USE
     Dosage: 100 ML, 1X/DAY
     Route: 041
     Dates: start: 20170906, end: 20171005

REACTIONS (2)
  - Bone marrow failure [Recovering/Resolving]
  - Hepatic function abnormal [Recovering/Resolving]

NARRATIVE: CASE EVENT DATE: 20171005
